FAERS Safety Report 19894409 (Version 1)
Quarter: 2021Q3

REPORT INFORMATION
  Report Type: Spontaneous
  Country: US (occurrence: US)
  Receive Date: 20210929
  Receipt Date: 20210929
  Transmission Date: 20211014
  Serious: No
  Sender: FDA-Public Use
  Company Number: None

PATIENT
  Age: 3 Year
  Sex: Male

DRUGS (1)
  1. CLEARLAX [Suspect]
     Active Substance: POLYETHYLENE GLYCOL 3350
     Indication: CONSTIPATION
     Dates: start: 20181107, end: 20190507

REACTIONS (4)
  - Anger [None]
  - Aggression [None]
  - Defiant behaviour [None]
  - Behaviour disorder [None]

NARRATIVE: CASE EVENT DATE: 20181112
